FAERS Safety Report 7341585-5 (Version None)
Quarter: 2011Q1

REPORT INFORMATION
  Report Type: 
  Country: None (occurrence: None)
  Receive Date: 20110309
  Receipt Date: 20110304
  Transmission Date: 20110831
  Serious: Yes (Other)
  Sender: FDA-Public Use
  Company Number: US-PFIZER INC-2010170857

PATIENT
  Sex: Female
  Weight: 63 kg

DRUGS (11)
  1. CALCIUM [Concomitant]
     Dosage: UNK
  2. ADVAIR DISKUS 100/50 [Concomitant]
     Indication: CHRONIC OBSTRUCTIVE PULMONARY DISEASE
     Dosage: [FLUTICASONE] 250 MCG /[SALMETROL] 50 MCG, 2X/DAY
  3. VITAMIN D [Concomitant]
     Indication: OSTEOPOROSIS
     Dosage: UNK
  4. DEPAKOTE [Concomitant]
     Indication: CHRONIC OBSTRUCTIVE PULMONARY DISEASE
     Dosage: 500 MG, DAILY
  5. SPIRIVA [Concomitant]
     Indication: CHRONIC OBSTRUCTIVE PULMONARY DISEASE
     Dosage: UNK
     Dates: start: 20100701
  6. CHANTIX [Suspect]
     Indication: SMOKING CESSATION THERAPY
     Dosage: 0.5 MG, 1X/DAY
     Route: 048
     Dates: start: 20101129, end: 20101206
  7. CHANTIX [Suspect]
     Dosage: 0.5 MG, 2X/DAY
     Route: 048
     Dates: start: 20101101, end: 20101208
  8. SINGULAIR [Concomitant]
     Indication: CHRONIC OBSTRUCTIVE PULMONARY DISEASE
     Dosage: 10 MG, UNK
  9. ALBUTEROL [Concomitant]
     Dosage: UNK
     Dates: start: 20100701
  10. ALPRAZOLAM [Concomitant]
     Indication: ANXIETY
     Dosage: 0.5 MG, DAILY
     Dates: start: 20100701
  11. ALENDRONATE SODIUM [Concomitant]
     Indication: OSTEOPOROSIS
     Dosage: 70 MG, WEEKLY

REACTIONS (7)
  - PHARYNGEAL OEDEMA [None]
  - THROAT TIGHTNESS [None]
  - HYPERSENSITIVITY [None]
  - SWELLING FACE [None]
  - LIP BLISTER [None]
  - URTICARIA [None]
  - DYSPHAGIA [None]
